FAERS Safety Report 16198809 (Version 5)
Quarter: 2019Q3

REPORT INFORMATION
  Report Type: Spontaneous
  Country: JP (occurrence: JP)
  Receive Date: 20190415
  Receipt Date: 20190904
  Transmission Date: 20191004
  Serious: Yes (Other)
  Sender: FDA-Public Use
  Company Number: JP-PFIZER INC-2019150584

PATIENT
  Age: 20 Year
  Sex: Male

DRUGS (4)
  1. RUPAFIN [Concomitant]
     Active Substance: RUPATADINE FUMARATE
     Indication: DERMATITIS ATOPIC
     Dosage: 20 MG, 1X/DAY (ONCE DAILY BEFORE BEDTIME)
     Dates: start: 20190204
  2. BIOTIN [Concomitant]
     Active Substance: BIOTIN
     Indication: DERMATITIS ATOPIC
     Dosage: 1 G, 1X/DAY (ONCE DAILY BEFORE BEDTIME)
     Dates: start: 20190204
  3. LYRICA [Suspect]
     Active Substance: PREGABALIN
     Indication: PAIN OF SKIN
     Dosage: 75 MG, 2X/DAY
     Route: 048
     Dates: start: 20190318, end: 20190402
  4. DEPAKENE-R [Concomitant]
     Active Substance: VALPROATE SODIUM
     Dosage: 200 MG, UNK
     Route: 048

REACTIONS (10)
  - Pruritus [Recovered/Resolved]
  - Product use in unapproved indication [Unknown]
  - Off label use [Unknown]
  - Diplopia [Unknown]
  - Eye movement disorder [Recovered/Resolved]
  - Accommodation disorder [Recovered/Resolved]
  - Vision blurred [Recovering/Resolving]
  - Stress [Unknown]
  - Headache [Recovered/Resolved]
  - Gaze palsy [Unknown]

NARRATIVE: CASE EVENT DATE: 2019
